FAERS Safety Report 8912099 (Version 1)
Quarter: 2012Q4

REPORT INFORMATION
  Report Type: 
  Country: US (occurrence: US)
  Receive Date: 20121116
  Receipt Date: 20121116
  Transmission Date: 20130627
  Serious: No
  Sender: FDA-Public Use
  Company Number: US-BAYER-2012-120070

PATIENT
  Age: 26 Year
  Sex: Female

DRUGS (1)
  1. MAGNEVIST [Suspect]
     Dosage: 10 ml, ONCE
     Route: 042
     Dates: start: 20121112, end: 20121112

REACTIONS (2)
  - Chest discomfort [None]
  - Sneezing [None]
